FAERS Safety Report 7388202-6 (Version None)
Quarter: 2011Q1

REPORT INFORMATION
  Report Type: 
  Country: None (occurrence: None)
  Receive Date: 20110329
  Receipt Date: 20110329
  Transmission Date: 20110831
  Serious: Yes (Life-Threatening, Hospitalization)
  Sender: FDA-Public Use
  Company Number: None

PATIENT
  Sex: Female
  Weight: 58.0604 kg

DRUGS (1)
  1. CIPROFLOXACIN [Suspect]
     Indication: URINARY TRACT INFECTION
     Dosage: 2 (250) 1ST THEN 1 DAILY
     Dates: start: 20101129

REACTIONS (7)
  - PHARYNGEAL OEDEMA [None]
  - URTICARIA [None]
  - SWELLING FACE [None]
  - ARTHRALGIA [None]
  - LIP SWELLING [None]
  - ASTHENIA [None]
  - SERUM SICKNESS [None]
